FAERS Safety Report 8167583-X (Version None)
Quarter: 2012Q1

REPORT INFORMATION
  Report Type: 
  Country: None (occurrence: None)
  Receive Date: 20120227
  Receipt Date: 20120223
  Transmission Date: 20120608
  Serious: Yes (Other)
  Sender: FDA-Public Use
  Company Number: US-ROCHE-784856

PATIENT
  Sex: Female
  Weight: 63.56 kg

DRUGS (5)
  1. AMNESTEEM [Suspect]
     Indication: ACNE
     Route: 065
     Dates: start: 20041201, end: 20050201
  2. ORTHO TRI-CYCLEN [Concomitant]
  3. NUVARING [Concomitant]
  4. ACCUTANE [Suspect]
     Indication: ACNE
     Route: 065
  5. ACCUTANE [Suspect]
     Route: 065
     Dates: start: 20040101, end: 20040601

REACTIONS (4)
  - ANXIETY [None]
  - CROHN'S DISEASE [None]
  - INFLAMMATORY BOWEL DISEASE [None]
  - COLITIS ULCERATIVE [None]
